FAERS Safety Report 8067895-4 (Version None)
Quarter: 2012Q1

REPORT INFORMATION
  Report Type: 
  Country: None (occurrence: None)
  Receive Date: 20120124
  Receipt Date: 20110830
  Transmission Date: 20120608
  Serious: No
  Sender: FDA-Public Use
  Company Number: US-AMGEN-USASP2011044732

PATIENT
  Sex: Female

DRUGS (6)
  1. CALCIUM [Concomitant]
  2. ASPIRIN [Concomitant]
  3. PROLIA [Suspect]
     Indication: OSTEOPOROSIS POSTMENOPAUSAL
     Dosage: 60 MG, Q6MO
     Dates: start: 20110826
  4. CRESTOR [Concomitant]
  5. VITAMIN B-12 [Concomitant]
  6. MULTIVITAMIN                       /00097801/ [Concomitant]

REACTIONS (2)
  - RASH [None]
  - SKIN WARM [None]
